FAERS Safety Report 23107567 (Version 2)
Quarter: 2023Q4

REPORT INFORMATION
  Report Type: Spontaneous
  Country: US (occurrence: US)
  Receive Date: 20231026
  Receipt Date: 20231108
  Transmission Date: 20240110
  Serious: Yes (Other)
  Sender: FDA-Public Use
  Company Number: US-BAUSCHBL-2023BNL010233

PATIENT
  Age: 77 Year
  Sex: Male

DRUGS (2)
  1. MURO 128 [Suspect]
     Active Substance: SODIUM CHLORIDE
     Indication: Corneal dystrophy
     Dosage: (TOTAL 5 DROPS IN EACH EYE/DAY)
     Route: 047
     Dates: start: 202301, end: 20231009
  2. MURO 128 [Suspect]
     Active Substance: SODIUM CHLORIDE
     Dosage: TOTALING 5 DROPS IN EACH EYE PER DAY
     Route: 047
     Dates: start: 20231013, end: 20231015

REACTIONS (1)
  - Blood pressure increased [Recovering/Resolving]

NARRATIVE: CASE EVENT DATE: 20230901
